FAERS Safety Report 5945833-5 (Version None)
Quarter: 2008Q4

REPORT INFORMATION
  Report Type: 
  Country: None (occurrence: None)
  Receive Date: 20081106
  Receipt Date: 20081024
  Transmission Date: 20090506
  Serious: Yes (Hospitalization)
  Sender: FDA-Public Use
  Company Number: 2008BI019326

PATIENT
  Age: 27 Year
  Sex: Female
  Weight: 125.1928 kg

DRUGS (10)
  1. TYSABRI [Suspect]
     Indication: MULTIPLE SCLEROSIS
     Dosage: 300 MG;QM;IV
     Route: 042
     Dates: start: 20050101, end: 20050101
  2. TYSABRI [Suspect]
     Indication: MULTIPLE SCLEROSIS
     Dosage: 300 MG;QM;IV
     Route: 042
     Dates: start: 20080209
  3. YASMIN [Concomitant]
  4. PROVIGIL [Concomitant]
  5. ZOLPIDEM [Concomitant]
  6. ZOMIG [Concomitant]
  7. COPAXONE [Concomitant]
  8. REBIF [Concomitant]
  9. CORTICOSTEROIDS [Concomitant]
  10. IMURAN [Concomitant]

REACTIONS (4)
  - ADENOVIRAL CONJUNCTIVITIS [None]
  - HYPERTHYROIDISM [None]
  - PYREXIA [None]
  - URINARY TRACT INFECTION [None]
